FAERS Safety Report 4754599-6 (Version None)
Quarter: 2005Q3

REPORT INFORMATION
  Report Type: 
  Country: None (occurrence: None)
  Receive Date: 20050829
  Receipt Date: 20050426
  Transmission Date: 20060218
  Serious: Yes (Hospitalization, Disabling)
  Sender: FDA-Public Use
  Company Number: US-MERCK-0504USA04796

PATIENT
  Age: 52 Year
  Sex: Female
  Weight: 82 kg

DRUGS (8)
  1. VIOXX [Suspect]
     Indication: SPINAL COLUMN STENOSIS
     Route: 048
     Dates: start: 20020219, end: 20030415
  2. TOPROL-XL [Concomitant]
     Indication: HYPERTENSION
     Route: 048
     Dates: start: 20020217
  3. NITROGLYCERIN [Suspect]
     Indication: CHEST PAIN
     Route: 065
     Dates: start: 20030408
  4. LIPITOR [Suspect]
     Indication: HYPERCHOLESTEROLAEMIA
     Route: 048
  5. NORVASC [Suspect]
     Indication: HYPERTENSION
     Route: 048
  6. DIOVAN [Suspect]
     Indication: HYPERTENSION
     Route: 048
  7. NIACIN [Suspect]
     Route: 048
  8. ZOCOR [Suspect]
     Indication: HYPERCHOLESTEROLAEMIA
     Route: 048

REACTIONS (13)
  - AORTIC DISORDER [None]
  - CHEST PAIN [None]
  - CORONARY ARTERY DISEASE [None]
  - DIZZINESS [None]
  - DYSPEPSIA [None]
  - HYPERTENSION [None]
  - HYPOTENSION [None]
  - IRRITABLE BOWEL SYNDROME [None]
  - MUSCLE SPASMS [None]
  - MYALGIA [None]
  - PALPITATIONS [None]
  - RASH [None]
  - THYROID NEOPLASM [None]
